FAERS Safety Report 11771692 (Version 1)
Quarter: 2015Q4

REPORT INFORMATION
  Report Type: Spontaneous
  Country: US (occurrence: None)
  Receive Date: 20151123
  Receipt Date: 20151123
  Transmission Date: 20160304
  Serious: Yes (Other)
  Sender: FDA-Public Use
  Company Number: None

PATIENT
  Age: 64 Year
  Sex: Female
  Weight: 74.84 kg

DRUGS (1)
  1. MOVANTIK [Suspect]
     Active Substance: NALOXEGOL OXALATE
     Indication: CONSTIPATION
     Dosage: 1 PILL
     Route: 048
     Dates: start: 20151113, end: 20151113

REACTIONS (3)
  - Gingival swelling [None]
  - Swollen tongue [None]
  - Mouth swelling [None]

NARRATIVE: CASE EVENT DATE: 20151114
